FAERS Safety Report 8213397 (Version 2)
Quarter: 2012Q4

REPORT INFORMATION
  Report Type: 
  Country: US (occurrence: US)
  Receive Date: 20111030
  Receipt Date: 20121023
  Transmission Date: 20130627
  Serious: No
  Sender: FDA-Public Use
  Company Number: US-AMGEN-USASP2011022053

PATIENT
  Age: 61 Year
  Sex: Male
  Weight: 77.1 kg

DRUGS (1)
  1. ENBREL [Suspect]
     Indication: RHEUMATOID ARTHRITIS
     Dosage: 50 mg, qwk
     Dates: start: 20110102

REACTIONS (3)
  - Swelling face [Recovered/Resolved]
  - Toothache [Recovered/Resolved]
  - Tooth infection [Recovered/Resolved]
